FAERS Safety Report 4357662-7 (Version None)
Quarter: 2004Q2

REPORT INFORMATION
  Report Type: 
  Country: None (occurrence: None)
  Receive Date: 20040513
  Receipt Date: 20040507
  Transmission Date: 20050107
  Serious: Yes (Hospitalization)
  Sender: FDA-Public Use
  Company Number: PT-MERCK-0405PRT00003

PATIENT
  Age: 35 Year
  Sex: Female

DRUGS (1)
  1. VIOXX [Suspect]
     Route: 048
     Dates: start: 20030729

REACTIONS (3)
  - ANGIONEUROTIC OEDEMA [None]
  - EYELID OEDEMA [None]
  - RASH [None]
